FAERS Safety Report 5777987-8 (Version None)
Quarter: 2008Q2

REPORT INFORMATION
  Report Type: 
  Country: None (occurrence: None)
  Receive Date: 20080617
  Receipt Date: 20080604
  Transmission Date: 20081010
  Serious: Yes (Death, Hospitalization)
  Sender: FDA-Public Use
  Company Number: 2008US000263

PATIENT
  Age: 65 Year
  Sex: Female

DRUGS (12)
  1. PROGRAF [Suspect]
     Indication: LIVER TRANSPLANT
     Dosage: 1 MG, BID, ORAL
     Route: 048
     Dates: start: 20070412, end: 20071217
  2. MYCOPHENOLATE MOFETIL [Suspect]
     Indication: LIVER TRANSPLANT
     Dosage: 750 MG, BID,ORAL
     Route: 048
     Dates: start: 20070405, end: 20071115
  3. LASIX [Concomitant]
  4. NEXIUM [Concomitant]
  5. TORPOL (METORPOLOL SUCCINATE) [Concomitant]
  6. AMARYL [Concomitant]
  7. NORVASC [Concomitant]
  8. SORAFENIB (SORAFENIB) [Concomitant]
  9. SIMETHICONE (SIMETICONE) [Concomitant]
  10. MULTI-VITAMINS [Concomitant]
  11. IMODIUM A-D [Concomitant]
  12. FERROUS SULFATE TAB [Concomitant]

REACTIONS (5)
  - CHEST X-RAY ABNORMAL [None]
  - DYSPNOEA [None]
  - FLUID OVERLOAD [None]
  - GENERAL PHYSICAL HEALTH DETERIORATION [None]
  - HEPATIC CANCER METASTATIC [None]
